FAERS Safety Report 9665686 (Version 1)
Quarter: 2013Q4

REPORT INFORMATION
  Report Type: Spontaneous
  Country: US (occurrence: US)
  Receive Date: 20131104
  Receipt Date: 20131104
  Transmission Date: 20140711
  Serious: Yes (Hospitalization)
  Sender: FDA-Public Use
  Company Number: US-JNJFOC-20131016978

PATIENT
  Sex: Female
  Weight: 99.79 kg

DRUGS (4)
  1. STELARA [Suspect]
     Indication: PSORIASIS
     Route: 058
     Dates: start: 201212, end: 20130726
  2. METHOTREXATE [Concomitant]
     Route: 065
  3. HUMIRA [Concomitant]
     Route: 065
  4. STEROIDS NOS [Concomitant]
     Route: 061

REACTIONS (1)
  - Coronary artery bypass [Recovered/Resolved]
